FAERS Safety Report 8191280-8 (Version None)
Quarter: 2012Q1

REPORT INFORMATION
  Report Type: 
  Country: None (occurrence: None)
  Receive Date: 20120221
  Receipt Date: 20111128
  Transmission Date: 20120608
  Serious: No
  Sender: FDA-Public Use
  Company Number: 046809

PATIENT

DRUGS (1)
  1. LACOSAMIDE [Suspect]
     Indication: EPILEPSY

REACTIONS (5)
  - BIPOLAR DISORDER [None]
  - SPEECH DISORDER [None]
  - MENTAL IMPAIRMENT [None]
  - FATIGUE [None]
  - ADVERSE DRUG REACTION [None]
